FAERS Safety Report 7907726-3 (Version None)
Quarter: 2011Q4

REPORT INFORMATION
  Report Type: 
  Country: None (occurrence: None)
  Receive Date: 20111110
  Receipt Date: 20111027
  Transmission Date: 20120403
  Serious: No
  Sender: FDA-Public Use
  Company Number: US-ELI_LILLY_AND_COMPANY-US201110007966

PATIENT
  Age: 71 Year

DRUGS (14)
  1. CYMBALTA [Suspect]
     Indication: DEPRESSION
     Dosage: 60 MG, UNKNOWN
     Dates: start: 20110101
  2. ASPIRIN [Concomitant]
  3. METOPROLOL [Concomitant]
  4. MELOXICAM [Concomitant]
     Indication: ARTHRALGIA
     Dosage: UNK, EACH MORNING
  5. FENTANYL [Concomitant]
     Dosage: 50 MG, OTHER
  6. AMLODIPINE [Concomitant]
     Indication: BLOOD PRESSURE
  7. GLUCOSAMINE [Concomitant]
     Indication: ARTHRITIS
     Dosage: 1000 MG, EACH MORNING
  8. DEPAKOTE [Concomitant]
     Indication: CONVULSION
     Dosage: 500 MG, UNKNOWN
  9. NEXIUM [Concomitant]
     Dosage: 40 MG, BID
  10. CELEXA [Concomitant]
     Indication: DEPRESSION
     Dosage: 40 MG, EACH EVENING
  11. OXYCODONE HCL [Concomitant]
     Dosage: 10 MG, EVERY 4 HRS
  12. MULTI-VITAMIN [Concomitant]
  13. FUROSEMIDE [Concomitant]
     Dosage: 20 MG, UNKNOWN
  14. DULCOLAX [Concomitant]

REACTIONS (1)
  - YELLOW SKIN [None]
